FAERS Safety Report 7190100-8 (Version None)
Quarter: 2010Q4

REPORT INFORMATION
  Report Type: 
  Country: None (occurrence: None)
  Receive Date: 20101223
  Receipt Date: 20101214
  Transmission Date: 20110411
  Serious: Yes (Hospitalization)
  Sender: FDA-Public Use
  Company Number: US-PFIZER INC-HQWYE507610DEC03

PATIENT
  Sex: Male

DRUGS (12)
  1. PROTONIX [Suspect]
     Dosage: 40 MG, 1X/DAY
     Route: 042
     Dates: start: 20031202
  2. PROPOFOL [Suspect]
     Dosage: UNK
     Route: 065
     Dates: start: 20031202
  3. POTASSIUM [Suspect]
     Dosage: UNK
     Route: 065
     Dates: start: 20031202
  4. LOVENOX [Suspect]
     Dosage: UNK
     Route: 065
     Dates: start: 20031202
  5. FUROSEMIDE [Suspect]
     Dosage: UNK
     Route: 065
     Dates: start: 20031202
  6. HEPARIN SODIUM [Suspect]
     Dosage: UNK
     Route: 065
     Dates: start: 20031202
  7. LISINOPRIL [Suspect]
     Dosage: UNK
     Route: 065
     Dates: start: 20031202
  8. ZITHROMAX [Suspect]
     Dosage: UNK
     Route: 065
     Dates: start: 20031202
  9. GLYCERYL TRINITRATE [Suspect]
     Dosage: UNKNOWN
     Route: 061
  10. ACETAMINOPHEN [Suspect]
     Dosage: UNK
     Route: 065
     Dates: start: 20031202
  11. ACETYLSALICYLIC ACID SRT [Suspect]
     Dosage: UNKNOWN
     Route: 065
  12. METFORMIN [Suspect]
     Dosage: UNKNOWN
     Route: 065

REACTIONS (3)
  - BLOOD CREATINE PHOSPHOKINASE INCREASED [None]
  - CONDITION AGGRAVATED [None]
  - RHABDOMYOLYSIS [None]
